FAERS Safety Report 18413107 (Version 1)
Quarter: 2020Q4

REPORT INFORMATION
  Report Type: Spontaneous
  Country: DE (occurrence: DE)
  Receive Date: 20201021
  Receipt Date: 20201021
  Transmission Date: 20210114
  Serious: Yes (Other)
  Sender: FDA-Public Use
  Company Number: DE-TOLMAR, INC.-20DE023455

PATIENT
  Age: 57 Year
  Sex: Male

DRUGS (7)
  1. IMIPENEM [Suspect]
     Active Substance: IMIPENEM
     Indication: NECROTISING FASCIITIS
     Route: 065
  2. METRONIDAZOLE. [Suspect]
     Active Substance: METRONIDAZOLE
     Indication: NECROTISING FASCIITIS
     Route: 065
  3. CASPOFUNGIN [Suspect]
     Active Substance: CASPOFUNGIN
     Indication: NECROTISING FASCIITIS
     Route: 065
  4. CLINDAMYCIN. [Suspect]
     Active Substance: CLINDAMYCIN
     Indication: NECROTISING FASCIITIS
     Route: 065
  5. TEICOPLANIN [Suspect]
     Active Substance: TEICOPLANIN
     Indication: NECROTISING FASCIITIS
     Route: 065
  6. ACICLOVIR [Suspect]
     Active Substance: ACYCLOVIR
     Indication: NECROTISING FASCIITIS
     Route: 065
  7. MEROPENEM. [Suspect]
     Active Substance: MEROPENEM
     Indication: NECROTISING FASCIITIS
     Route: 065

REACTIONS (5)
  - Acute kidney injury [Recovered/Resolved]
  - Intensive care unit acquired weakness [Recovered/Resolved]
  - Herpes simplex pneumonia [Recovered/Resolved]
  - Septic shock [Recovered/Resolved]
  - Multiple organ dysfunction syndrome [Recovered/Resolved]
